FAERS Safety Report 13717139 (Version 2)
Quarter: 2018Q1

REPORT INFORMATION
  Report Type: Spontaneous
  Country: US (occurrence: US)
  Receive Date: 20170705
  Receipt Date: 20180226
  Transmission Date: 20180508
  Serious: Yes (Life-Threatening, Other)
  Sender: FDA-Public Use
  Company Number: US-SUNOVION-2017SUN002876

PATIENT
  Age: 21 Year

DRUGS (1)
  1. LATUDA [Suspect]
     Active Substance: LURASIDONE HYDROCHLORIDE
     Dosage: UNK
     Route: 048

REACTIONS (9)
  - Seizure [Unknown]
  - Neuroleptic malignant syndrome [Not Recovered/Not Resolved]
  - Prescribed overdose [Unknown]
  - Nervous system disorder [Unknown]
  - Psoriasis [Unknown]
  - Gingivitis [Unknown]
  - Feeling abnormal [Unknown]
  - Tic [Unknown]
  - Suicidal ideation [Unknown]
